FAERS Safety Report 16935739 (Version 2)
Quarter: 2019Q4

REPORT INFORMATION
  Report Type: Spontaneous
  Country: GB (occurrence: GB)
  Receive Date: 20191018
  Receipt Date: 20191112
  Transmission Date: 20200122
  Serious: No
  Sender: FDA-Public Use
  Company Number: GB-US WORLDMEDS, LLC-E2B_00003132

PATIENT
  Age: 61 Year
  Sex: Male

DRUGS (8)
  1. NORTRIPTYLINE [Concomitant]
     Active Substance: NORTRIPTYLINE
  2. CLONAZEPAM. [Concomitant]
     Active Substance: CLONAZEPAM
  3. ATORVASTATIN [Concomitant]
     Active Substance: ATORVASTATIN
  4. XADAGO [Suspect]
     Active Substance: SAFINAMIDE MESYLATE
     Indication: PARKINSON^S DISEASE
     Route: 048
     Dates: start: 20190909, end: 201910
  5. DONEPEZIL. [Concomitant]
     Active Substance: DONEPEZIL
  6. ASPIRIN. [Concomitant]
     Active Substance: ASPIRIN
  7. LEVODOPA [Concomitant]
     Active Substance: LEVODOPA
  8. BISOPROLOL [Concomitant]
     Active Substance: BISOPROLOL

REACTIONS (1)
  - Musculoskeletal chest pain [Recovered/Resolved]

NARRATIVE: CASE EVENT DATE: 20190914
